FAERS Safety Report 7946016-X (Version None)
Quarter: 2011Q4

REPORT INFORMATION
  Report Type: 
  Country: None (occurrence: None)
  Receive Date: 20111129
  Receipt Date: 20111122
  Transmission Date: 20120403
  Serious: Yes (Death, Hospitalization)
  Sender: FDA-Public Use
  Company Number: US-GLAXOSMITHKLINE-A0797199A

PATIENT
  Age: 62 Year
  Sex: Male
  Weight: 90.5 kg

DRUGS (6)
  1. VERAPAMIL [Concomitant]
  2. HYDROCHLOROTHIAZIDE [Concomitant]
  3. AVANDIA [Suspect]
     Indication: DIABETES MELLITUS
     Dosage: 4MG TWICE PER DAY
     Route: 048
     Dates: start: 19990601, end: 20040224
  4. GLUCOPHAGE [Concomitant]
  5. LIPITOR [Concomitant]
  6. ZESTRIL [Concomitant]

REACTIONS (6)
  - ARRHYTHMIA [None]
  - CEREBROVASCULAR ACCIDENT [None]
  - CEREBRAL INFARCTION [None]
  - CONVULSION [None]
  - TRANSIENT ISCHAEMIC ATTACK [None]
  - BRAIN STEM HAEMORRHAGE [None]
